FAERS Safety Report 4377856-4 (Version None)
Quarter: 2004Q2

REPORT INFORMATION
  Report Type: 
  Country: None (occurrence: None)
  Receive Date: 20040609
  Receipt Date: 20040528
  Transmission Date: 20050107
  Serious: Yes (Hospitalization)
  Sender: FDA-Public Use
  Company Number: 02P-056-0196146-00

PATIENT
  Age: 60 Year
  Sex: Male

DRUGS (4)
  1. MAVIK [Suspect]
     Dosage: 0.5 MG, 1 IN 1 D, PER ORAL
     Route: 048
     Dates: start: 19980101, end: 20020613
  2. MAVIK [Suspect]
     Dosage: 0.5 MG, 1 IN 1 D, PER ORAL
     Route: 048
     Dates: start: 20020617
  3. GLIMEPIRIDE [Suspect]
     Indication: DIABETES MELLITUS NON-INSULIN-DEPENDENT
     Dosage: 1 MG, 1 IN 1 D, PER ORAL
     Route: 048
     Dates: start: 20020529, end: 20020608
  4. METFORMIN HCL [Suspect]
     Indication: DIABETES MELLITUS NON-INSULIN-DEPENDENT
     Dosage: 850 MG, 2 IN 1 D, ORAL
     Route: 048
     Dates: start: 20010101, end: 20020613

REACTIONS (3)
  - HEPATIC STEATOSIS [None]
  - HIATUS HERNIA [None]
  - PANCREATITIS ACUTE [None]
